FAERS Safety Report 9984604 (Version 2)
Quarter: 2014Q1

REPORT INFORMATION
  Report Type: Spontaneous
  Country: JP (occurrence: JP)
  Receive Date: 20140307
  Receipt Date: 20140320
  Transmission Date: 20141002
  Serious: Yes (Hospitalization)
  Sender: FDA-Public Use
  Company Number: JP-SA-2014SA027046

PATIENT
  Age: 69 Year
  Sex: Female

DRUGS (3)
  1. ONETAXOTERE [Suspect]
     Indication: CHEMOTHERAPY
     Route: 042
     Dates: start: 20140218
  2. CARBOPLATIN [Concomitant]
     Dosage: DOSE: 390 (UNIT NOT REPORTED)
     Dates: start: 20140218
  3. DECADRON [Concomitant]
     Dosage: FREQUENCY: ONCE
     Dates: start: 20140218

REACTIONS (1)
  - Enterocolitis [Recovering/Resolving]
